FAERS Safety Report 23040509 (Version 2)
Quarter: 2023Q4

REPORT INFORMATION
  Report Type: Other
  Country: US (occurrence: US)
  Receive Date: 20231006
  Receipt Date: 20231006
  Transmission Date: 20240110
  Serious: Yes (Death)
  Sender: FDA-Public Use
  Company Number: US-TRAVERE-2023TVT00212

PATIENT
  Age: 9 Month
  Sex: Male

DRUGS (7)
  1. CHOLBAM [Suspect]
     Active Substance: CHOLIC ACID
     Indication: Metabolic disorder
     Route: 048
     Dates: start: 20230513, end: 20230620
  2. KEPPRA [Concomitant]
     Active Substance: LEVETIRACETAM
  3. PHENOBARBITAL [Concomitant]
     Active Substance: PHENOBARBITAL
  4. ALBUTEROL [Concomitant]
     Active Substance: ALBUTEROL
  5. CALCIUM CARBONATE\ERGOCALCIFEROL\RETINOL [Concomitant]
     Active Substance: CALCIUM CARBONATE\ERGOCALCIFEROL\RETINOL
  6. VITAMINS [Concomitant]
     Active Substance: VITAMINS
  7. IRON [Concomitant]
     Active Substance: IRON

REACTIONS (4)
  - Death [Fatal]
  - Pyrexia [Unknown]
  - Rhinorrhoea [Unknown]
  - Productive cough [Unknown]

NARRATIVE: CASE EVENT DATE: 20230620
